FAERS Safety Report 6781385-8 (Version None)
Quarter: 2010Q2

REPORT INFORMATION
  Report Type: 
  Country: None (occurrence: None)
  Receive Date: 20100621
  Receipt Date: 20091120
  Transmission Date: 20101027
  Serious: Yes (Hospitalization)
  Sender: FDA-Public Use
  Company Number: US-AMGEN-QUU373694

PATIENT
  Sex: Male
  Weight: 90.9 kg

DRUGS (13)
  1. ARANESP [Suspect]
     Indication: RENAL FAILURE CHRONIC
     Route: 058
     Dates: start: 20060523
  2. PREDNISONE [Concomitant]
     Route: 048
     Dates: start: 20070417
  3. VENOFER [Concomitant]
  4. VITAMIN B-12 [Concomitant]
     Dates: start: 20070417
  5. ALLOPURINOL [Concomitant]
  6. MULTI-VITAMINS [Concomitant]
     Route: 048
  7. SODIUM BICARBONATE [Concomitant]
     Route: 048
     Dates: start: 20091014
  8. OPIUM TINCTURE [Concomitant]
     Route: 048
  9. K-DUR [Concomitant]
     Route: 048
     Dates: start: 20090209
  10. TUMS [Concomitant]
     Route: 048
  11. VITAMIN D [Concomitant]
     Route: 048
  12. MAGNESIUM OXIDE [Concomitant]
     Route: 048
  13. FOLIC ACID [Concomitant]
     Route: 048

REACTIONS (2)
  - DEEP VEIN THROMBOSIS [None]
  - WHITE BLOOD CELL COUNT INCREASED [None]
